FAERS Safety Report 12332556 (Version 2)
Quarter: 2016Q2

REPORT INFORMATION
  Report Type: Other
  Country: US (occurrence: US)
  Receive Date: 20160504
  Receipt Date: 20160518
  Transmission Date: 20160815
  Serious: Yes (Death, Other)
  Sender: FDA-Public Use
  Company Number: US-SHIRE-US201605229

PATIENT
  Age: 73 Year
  Sex: Female

DRUGS (1)
  1. GATTEX [Suspect]
     Active Substance: TEDUGLUTIDE\WATER
     Indication: SHORT-BOWEL SYNDROME
     Dosage: UNK UNK, UNKNOWN
     Route: 058
     Dates: start: 20140619

REACTIONS (4)
  - Crohn^s disease [Unknown]
  - Hyperkalaemia [Unknown]
  - Septic shock [Fatal]
  - Pneumonia [Fatal]

NARRATIVE: CASE EVENT DATE: 20160421
